FAERS Safety Report 16909294 (Version 1)
Quarter: 2019Q4

REPORT INFORMATION
  Report Type: Spontaneous
  Country: US (occurrence: US)
  Receive Date: 20190820
  Receipt Date: 20190820
  Transmission Date: 20200122
  Serious: Yes (Other)
  Sender: FDA-Public Use
  Company Number: None

PATIENT
  Age: 71 Year
  Sex: Female
  Weight: 133.81 kg

DRUGS (23)
  1. TRILOGY [Concomitant]
  2. ADVAIR HFA [Concomitant]
     Active Substance: FLUTICASONE PROPIONATE\SALMETEROL XINAFOATE
  3. SINGULAIR [Concomitant]
     Active Substance: MONTELUKAST SODIUM
  4. LIDOCAINE PATCHES [Concomitant]
     Active Substance: LIDOCAINE
  5. HYDROCORTIZONE CREAM [Concomitant]
  6. VITAMIN C + B12 [Concomitant]
  7. OXYGEN. [Concomitant]
     Active Substance: OXYGEN
  8. LASIX [Concomitant]
     Active Substance: FUROSEMIDE
  9. LEVOFLOXACIN 500MG [Suspect]
     Active Substance: LEVOFLOXACIN
     Indication: URINARY TRACT INFECTION
     Dosage: ?          QUANTITY:1 DF DOSAGE FORM;?
     Route: 048
     Dates: start: 20190514, end: 20190514
  10. VENTOLIN [Concomitant]
     Active Substance: ALBUTEROL SULFATE
  11. NYSTATIN POWDER [Concomitant]
     Active Substance: NYSTATIN
  12. HYDROXAZIN [Concomitant]
  13. BENADRYL CREAM [Concomitant]
     Active Substance: DIPHENHYDRAMINE\ZINC ACETATE
  14. SPIRIVA [Concomitant]
     Active Substance: TIOTROPIUM BROMIDE MONOHYDRATE
  15. ALBUTEROL DUO NEB [Concomitant]
  16. DIFLUCAN GEL [Concomitant]
  17. OXYBUTYNIN. [Concomitant]
     Active Substance: OXYBUTYNIN CHLORIDE
  18. DUONEBULIZER [Concomitant]
  19. MAGIC BUTT CREAM [Concomitant]
  20. FLUCONAZOLE. [Concomitant]
     Active Substance: FLUCONAZOLE
  21. BENADRYL [Concomitant]
     Active Substance: DIPHENHYDRAMINE HYDROCHLORIDE
  22. WARFARIN [Concomitant]
     Active Substance: WARFARIN
  23. VITAMIN D3 [Concomitant]
     Active Substance: CHOLECALCIFEROL

REACTIONS (12)
  - Dizziness [None]
  - Drug ineffective [None]
  - Nausea [None]
  - Dyspnoea [None]
  - Drug screen positive [None]
  - Decreased appetite [None]
  - Arthralgia [None]
  - Screaming [None]
  - Joint swelling [None]
  - Vision blurred [None]
  - Hypophagia [None]
  - Diplopia [None]

NARRATIVE: CASE EVENT DATE: 20190515
